FAERS Safety Report 6371999-1 (Version None)
Quarter: 2009Q3

REPORT INFORMATION
  Report Type: 
  Country: None (occurrence: None)
  Receive Date: 20090917
  Receipt Date: 20090904
  Transmission Date: 20100115
  Serious: Yes (Other)
  Sender: FDA-Public Use
  Company Number: ADR16552009

PATIENT
  Age: 42 Year
  Sex: Female

DRUGS (3)
  1. CITALOPRAM HYDROBROMIDE [Suspect]
     Dosage: 20 MG/DAY, ORAL
     Route: 048
  2. FLUOXETINE [Concomitant]
  3. NOVOMIX [Concomitant]

REACTIONS (1)
  - HYPOGLYCAEMIA [None]
